FAERS Safety Report 9676856 (Version 2)
Quarter: 2013Q4

REPORT INFORMATION
  Report Type: Spontaneous
  Country: US (occurrence: US)
  Receive Date: 20131107
  Receipt Date: 20131107
  Transmission Date: 20140711
  Serious: No
  Sender: FDA-Public Use
  Company Number: US-BAXTER-2012BAX017926

PATIENT
  Sex: Male
  Weight: 89 kg

DRUGS (2)
  1. DIANEAL LOW CALCIUM [Suspect]
     Indication: PERITONEAL DIALYSIS
     Route: 033
     Dates: start: 20120831
  2. DIANEAL LOW CALCIUM (ULTRABAG) [Suspect]
     Indication: PERITONEAL DIALYSIS
     Route: 033
     Dates: start: 20120831

REACTIONS (4)
  - Anorectal discomfort [Unknown]
  - Procedural pain [Unknown]
  - Abdominal pain lower [Recovering/Resolving]
  - Discomfort [Recovering/Resolving]
